FAERS Safety Report 8239407-3 (Version None)
Quarter: 2012Q1

REPORT INFORMATION
  Report Type: 
  Country: None (occurrence: None)
  Receive Date: 20120328
  Receipt Date: 20120321
  Transmission Date: 20120608
  Serious: Yes (Hospitalization, Other)
  Sender: FDA-Public Use
  Company Number: US-TEVA-324123USA

PATIENT
  Sex: Female

DRUGS (1)
  1. LEVETIRACETAM [Suspect]

REACTIONS (5)
  - THERMAL BURN [None]
  - MIGRAINE [None]
  - GRAND MAL CONVULSION [None]
  - ACCIDENT AT HOME [None]
  - FALL [None]
